FAERS Safety Report 8496081-9 (Version None)
Quarter: 2012Q3

REPORT INFORMATION
  Report Type: 
  Country: None (occurrence: None)
  Receive Date: 20120709
  Receipt Date: 20120629
  Transmission Date: 20120928
  Serious: Yes (Hospitalization, Other)
  Sender: FDA-Public Use
  Company Number: US-JNJFOC-20110308029

PATIENT
  Sex: Female
  Weight: 62.14 kg

DRUGS (9)
  1. DURAGESIC-100 [Suspect]
     Route: 062
     Dates: start: 20120201
  2. DURAGESIC-100 [Suspect]
     Indication: BACK PAIN
     Route: 062
     Dates: start: 19960101
  3. UNKNOWN MULTIPLE MEDICATION [Concomitant]
     Indication: INTERVERTEBRAL DISC PROTRUSION
     Route: 065
  4. DURAGESIC-100 [Suspect]
     Route: 062
  5. UNKNOWN MULTIPLE MEDICATION [Concomitant]
     Indication: DEAFNESS
     Route: 065
  6. DURAGESIC-100 [Suspect]
     Route: 062
     Dates: start: 20120201
  7. DURAGESIC-100 [Suspect]
     Route: 062
     Dates: start: 20030101
  8. DURAGESIC-100 [Suspect]
     Route: 062
  9. UNKNOWN MULTIPLE MEDICATION [Concomitant]
     Indication: PAIN
     Route: 065

REACTIONS (21)
  - SCIATICA [None]
  - APPLICATION SITE VESICLES [None]
  - PRODUCT OUTER PACKAGING ISSUE [None]
  - APPLICATION SITE IRRITATION [None]
  - WEIGHT DECREASED [None]
  - NERVOUSNESS [None]
  - LACTOSE INTOLERANCE [None]
  - OSTEOARTHRITIS [None]
  - SPINAL COLUMN STENOSIS [None]
  - PRODUCT QUALITY ISSUE [None]
  - RASH [None]
  - ENDOMETRIAL CANCER [None]
  - WRONG TECHNIQUE IN DRUG USAGE PROCESS [None]
  - DEAFNESS [None]
  - BACK PAIN [None]
  - HYPERHIDROSIS [None]
  - DYSPEPSIA [None]
  - PREMATURE MENOPAUSE [None]
  - PRODUCT ADHESION ISSUE [None]
  - UTERINE CANCER [None]
  - APPLICATION SITE HYPERSENSITIVITY [None]
